FAERS Safety Report 24294751 (Version 1)
Quarter: 2024Q3

REPORT INFORMATION
  Report Type: Spontaneous
  Country: US (occurrence: US)
  Receive Date: 20240906
  Receipt Date: 20240906
  Transmission Date: 20241017
  Serious: No
  Sender: SUNOVION
  Company Number: US-SUMITOMO PHARMA SWITZERLAND GMBH-2024SPA001386

PATIENT

DRUGS (1)
  1. GEMTESA [Suspect]
     Active Substance: VIBEGRON
     Dosage: FORGOT TO TAKE IT WITH WATER, SPORADIC ALLY, ^I HAVEN^T TAKE IT EVERY DAY^, AND HAS BEEN TAKING IT W
     Route: 048
     Dates: start: 202408

REACTIONS (3)
  - Dizziness [Unknown]
  - Headache [Unknown]
  - Wrong technique in product usage process [Unknown]

NARRATIVE: CASE EVENT DATE: 20240801
